FAERS Safety Report 8514839-4 (Version None)
Quarter: 2012Q3

REPORT INFORMATION
  Report Type: 
  Country: None (occurrence: None)
  Receive Date: 20120711
  Receipt Date: 20120711
  Transmission Date: 20120928
  Serious: Yes (Other)
  Sender: FDA-Public Use
  Company Number: None

PATIENT
  Age: 29 Year
  Sex: Male
  Weight: 79.3795 kg

DRUGS (3)
  1. CREST PRO-HEALTH CLINICAL RINSE 0.1% CETYLPYRIDINIUM  CHLORIDE PROCTOR [Suspect]
     Indication: PROPHYLAXIS
     Dosage: 20ML 2X DAY 30 SECONDS DENTAL
     Route: 004
     Dates: start: 20120702, end: 20120708
  2. CREST PRO-HEALTH CLINICAL RINSE 0.1% CETYLPYRIDINIUM  CHLORIDE PROCTOR [Suspect]
     Indication: DENTAL PLAQUE
     Dosage: 20ML 2X DAY 30 SECONDS DENTAL
     Route: 004
     Dates: start: 20120702, end: 20120708
  3. CREST PRO-HEALTH CLINICAL RINSE 0.1% CETYLPYRIDINIUM  CHLORIDE PROCTOR [Suspect]
     Indication: GINGIVITIS
     Dosage: 20ML 2X DAY 30 SECONDS DENTAL
     Route: 004
     Dates: start: 20120702, end: 20120708

REACTIONS (4)
  - INSOMNIA [None]
  - STOMATITIS [None]
  - PAIN [None]
  - PHYSICAL PRODUCT LABEL ISSUE [None]
